FAERS Safety Report 13518393 (Version 1)
Quarter: 2017Q2

REPORT INFORMATION
  Report Type: Spontaneous
  Country: BR (occurrence: BR)
  Receive Date: 20170505
  Receipt Date: 20170505
  Transmission Date: 20170830
  Serious: Yes (Hospitalization)
  Sender: FDA-Public Use
  Company Number: BR-BAYER-2017-063274

PATIENT
  Age: 30 Year
  Sex: Female

DRUGS (2)
  1. MIRENA [Suspect]
     Active Substance: LEVONORGESTREL
     Indication: CONTRACEPTION
     Dosage: 20 MCG/24HR, CONT
     Route: 015
     Dates: start: 20170327, end: 20170328
  2. KEFLIN [Concomitant]
     Active Substance: CEPHALOTHIN SODIUM
     Indication: INFECTION PROPHYLAXIS
     Dosage: UNK
     Route: 042
     Dates: start: 20170327, end: 20170328

REACTIONS (8)
  - Procedural pain [Unknown]
  - Device deployment issue [None]
  - Post procedural discomfort [None]
  - Vulvovaginal injury [Unknown]
  - Device defective [None]
  - Vaginal haemorrhage [Unknown]
  - Device expulsion [Recovered/Resolved]
  - Device use issue [None]

NARRATIVE: CASE EVENT DATE: 20170327
